FAERS Safety Report 8852995 (Version 1)
Quarter: 2012Q4

REPORT INFORMATION
  Report Type: Report from Study
  Country: US (occurrence: US)
  Receive Date: 20121022
  Receipt Date: 20121022
  Transmission Date: 20130627
  Serious: Yes (Hospitalization, Other)
  Sender: FDA-Public Use
  Company Number: US-ABBOTT-12P-163-0959010-00

PATIENT
  Age: 56 None
  Sex: Male
  Weight: 59.02 kg

DRUGS (7)
  1. HUMIRA [Suspect]
     Indication: PSORIATIC ARTHROPATHY
     Dates: start: 2010, end: 20120412
  2. HUMIRA [Suspect]
     Indication: PSORIASIS
     Dosage: 160 milligrams loading dose
     Dates: start: 20120720
  3. HUMIRA [Suspect]
     Indication: CROHN^S DISEASE
  4. OXYCONTIN [Concomitant]
     Indication: PAIN
  5. PRILOSEC [Concomitant]
     Indication: GASTROOESOPHAGEAL REFLUX DISEASE
  6. FLONASE [Concomitant]
     Indication: SEASONAL ALLERGY
  7. ALLEGRA [Concomitant]
     Indication: SEASONAL ALLERGY

REACTIONS (7)
  - Intestinal obstruction [Unknown]
  - Abdominal pain [Recovered/Resolved]
  - Crohn^s disease [Unknown]
  - Large intestine perforation [Unknown]
  - Enteritis infectious [Unknown]
  - Small intestinal perforation [Unknown]
  - Weight decreased [Unknown]
